FAERS Safety Report 8845230 (Version 1)
Quarter: 2012Q4

REPORT INFORMATION
  Report Type: 
  Country: NL (occurrence: NL)
  Receive Date: 20121017
  Receipt Date: 20121017
  Transmission Date: 20130627
  Serious: Yes (Hospitalization)
  Sender: FDA-Public Use
  Company Number: NL-PFIZER INC-2012253220

PATIENT
  Sex: Female
  Weight: 118 kg

DRUGS (8)
  1. GENOTROPIN [Suspect]
     Indication: GROWTH HORMONE DEFICIENCY
     Dosage: 0.7 mg, 7/wk
     Route: 058
     Dates: start: 20040317
  2. CORTISONE ACETATE [Concomitant]
     Indication: BLOOD CORTICOTROPHIN DECREASED
     Dosage: UNK
     Dates: start: 19970115
  3. BRUFEN [Concomitant]
     Indication: FOLATE DEFICIENCY
     Dosage: UNK
     Dates: start: 20071108
  4. COVERSYL PLUS [Concomitant]
     Indication: HYPERTENSION
     Dosage: UNK
     Dates: start: 20081120
  5. ESTRADIOL [Concomitant]
     Indication: HYPOGONADISM
     Dosage: UNK
     Dates: start: 20081120
  6. METOPROLOL [Concomitant]
     Indication: HYPERTENSION
     Dosage: UNK
     Dates: start: 20090101
  7. LEVOTHYROXINE SODIUM [Concomitant]
     Indication: BLOOD THYROID STIMULATING HORMONE DECREASED
     Dosage: UNK
     Dates: start: 19970115
  8. SIMVASTATIN [Concomitant]
     Indication: HYPERCHOLESTEROLAEMIA
     Dosage: UNK
     Dates: start: 20090601

REACTIONS (1)
  - Ear disorder [Unknown]
